FAERS Safety Report 11345469 (Version 1)
Quarter: 2015Q3

REPORT INFORMATION
  Report Type: Spontaneous
  Country: US (occurrence: US)
  Receive Date: 20150806
  Receipt Date: 20150806
  Transmission Date: 20151125
  Serious: Yes (Hospitalization)
  Sender: FDA-Public Use
  Company Number: US-JNJFOC-20150718891

PATIENT
  Sex: Female
  Weight: 58.51 kg

DRUGS (1)
  1. GENERIC FENTANYL TRANSDERMAL PATCH [Suspect]
     Active Substance: FENTANYL
     Indication: PAIN
     Route: 062

REACTIONS (11)
  - Rib fracture [Unknown]
  - Pain [Unknown]
  - Withdrawal syndrome [Unknown]
  - Product adhesion issue [Unknown]
  - Road traffic accident [Unknown]
  - Adverse event [Unknown]
  - Constipation [Unknown]
  - Skull fracture [Unknown]
  - Brain injury [Unknown]
  - Eye injury [Unknown]
  - Hyperhidrosis [Unknown]

NARRATIVE: CASE EVENT DATE: 2010
